FAERS Safety Report 17689105 (Version 1)
Quarter: 2020Q2

REPORT INFORMATION
  Report Type: Spontaneous
  Country: CA (occurrence: CA)
  Receive Date: 20200421
  Receipt Date: 20200421
  Transmission Date: 20200714
  Serious: Yes (Other)
  Sender: FDA-Public Use
  Company Number: CA-MYLANLABS-2020M1039880

PATIENT

DRUGS (6)
  1. LEVOTHYROXINE. [Suspect]
     Active Substance: LEVOTHYROXINE
     Indication: HYPOTHYROIDISM
     Dosage: UNK
     Route: 064
  2. AMITRIPTYLINE [Suspect]
     Active Substance: AMITRIPTYLINE
     Indication: MIGRAINE
     Dosage: 30 MILLIGRAM
     Route: 064
  3. DINOPROSTONE. [Suspect]
     Active Substance: DINOPROSTONE
     Indication: PRODUCT USED FOR UNKNOWN INDICATION
     Dosage: UNK
     Route: 064
  4. BUPIVACAINE HYDROCHLORIDE. [Suspect]
     Active Substance: BUPIVACAINE HYDROCHLORIDE
     Indication: PAIN
     Dosage: 10 MILLILITER
     Route: 064
  5. OXYTOCIN. [Suspect]
     Active Substance: OXYTOCIN
     Indication: PRODUCT USED FOR UNKNOWN INDICATION
     Dosage: UNK
     Route: 064
  6. FENTANYL. [Suspect]
     Active Substance: FENTANYL
     Indication: PAIN
     Dosage: 50 MILLIGRAM
     Route: 064

REACTIONS (3)
  - Foetal exposure during pregnancy [Unknown]
  - Tachycardia foetal [Unknown]
  - Foetal heart rate deceleration abnormality [Unknown]
